FAERS Safety Report 6591091-0 (Version None)
Quarter: 2010Q1

REPORT INFORMATION
  Report Type: 
  Country: None (occurrence: None)
  Receive Date: 20100219
  Receipt Date: 20100212
  Transmission Date: 20100710
  Serious: Yes (Hospitalization)
  Sender: FDA-Public Use
  Company Number: US-B.I. PHARMACEUTICALS,INC./RIDGEFIELD-2010-BP-01769BP

PATIENT
  Sex: Male

DRUGS (5)
  1. SPIRIVA [Suspect]
     Indication: CHRONIC OBSTRUCTIVE PULMONARY DISEASE
  2. XOPENEX [Suspect]
     Indication: CHRONIC OBSTRUCTIVE PULMONARY DISEASE
  3. XOPENEX [Suspect]
     Dates: end: 20091001
  4. XOPENEX [Suspect]
  5. ADVAIR DISKUS 100/50 [Suspect]
     Indication: CHRONIC OBSTRUCTIVE PULMONARY DISEASE

REACTIONS (9)
  - APHTHOUS STOMATITIS [None]
  - BACTERIAL INFECTION [None]
  - CORONARY ARTERY DISEASE [None]
  - GINGIVAL PAIN [None]
  - GLOSSODYNIA [None]
  - HERPES SIMPLEX [None]
  - NASAL OEDEMA [None]
  - OROPHARYNGEAL PAIN [None]
  - PNEUMONIA [None]
